FAERS Safety Report 8859081 (Version 1)
Quarter: 2012Q4

REPORT INFORMATION
  Report Type: Spontaneous
  Country: FR (occurrence: None)
  Receive Date: 20121023
  Receipt Date: 20121023
  Transmission Date: 20130627
  Serious: No
  Sender: FDA-Public Use
  Company Number: 1452813

PATIENT
  Age: 34 Year
  Sex: Female
  Weight: 75 kg

DRUGS (4)
  1. PACLITAXEL [Suspect]
     Indication: UTERINE CANCER
     Dosage: 1 Cyclical
     Route: 041
     Dates: start: 20120905, end: 20120905
  2. PACLITAXEL [Suspect]
     Indication: EPIDERMOID CARCINOMA
     Dosage: 1 Cyclical
     Route: 041
     Dates: start: 20120905, end: 20120905
  3. CARBOPLATINE [Concomitant]
  4. FERINJECT [Concomitant]

REACTIONS (5)
  - Bronchospasm [None]
  - Back pain [None]
  - Hypersensitivity [None]
  - Infusion related reaction [None]
  - Oxygen saturation decreased [None]
